FAERS Safety Report 16769574 (Version 1)
Quarter: 2019Q3

REPORT INFORMATION
  Report Type: Spontaneous
  Country: US (occurrence: US)
  Receive Date: 20190903
  Receipt Date: 20190903
  Transmission Date: 20191005
  Serious: Yes (Other)
  Sender: FDA-Public Use
  Company Number: US-NOVOPROD-681274

PATIENT
  Age: 87 Year
  Sex: Male

DRUGS (3)
  1. AMIODARONE [Concomitant]
     Active Substance: AMIODARONE
     Indication: PRODUCT USED FOR UNKNOWN INDICATION
     Dosage: UNK
  2. LANTUS [Suspect]
     Active Substance: INSULIN GLARGINE
     Indication: TYPE 2 DIABETES MELLITUS
     Dosage: 40 UNITS IN THE MORNING AND 30 UNITS AT NIGHT.
     Route: 058
  3. NOVOLOG [Suspect]
     Active Substance: INSULIN ASPART
     Indication: TYPE 2 DIABETES MELLITUS
     Dosage: 15 IU, TID (SOMETIMES SLIDING SCALE)
     Route: 058
     Dates: start: 2003

REACTIONS (4)
  - Blood glucose increased [Recovering/Resolving]
  - Urinary tract infection [Recovering/Resolving]
  - Blood glucose decreased [Unknown]
  - Atrial fibrillation [Unknown]

NARRATIVE: CASE EVENT DATE: 2014
